FAERS Safety Report 21193672 (Version 1)
Quarter: 2022Q3

REPORT INFORMATION
  Report Type: Spontaneous
  Country: CA (occurrence: CA)
  Receive Date: 20220810
  Receipt Date: 20220810
  Transmission Date: 20221026
  Serious: Yes (Congenital Anomaly, Other)
  Sender: FDA-Public Use
  Company Number: CA-ABBVIE-22K-028-4497670-00

PATIENT
  Age: 67 Year
  Sex: Male

DRUGS (2)
  1. HUMIRA [Suspect]
     Active Substance: ADALIMUMAB
     Indication: Colitis ulcerative
     Route: 058
  2. VAXZEVRIA [Suspect]
     Active Substance: AZD-1222
     Indication: COVID-19 immunisation
     Dosage: VIAL CONTAINS 10 DOSES OF 0.5ML
     Route: 030

REACTIONS (5)
  - Faecal volume decreased [Recovered/Resolved]
  - Haemorrhage [Recovered/Resolved]
  - Therapeutic product effect delayed [Recovered/Resolved]
  - Drug level decreased [Recovered/Resolved]
  - Colitis ulcerative [Recovered/Resolved]
